FAERS Safety Report 4622690-0 (Version None)
Quarter: 2005Q1

REPORT INFORMATION
  Report Type: 
  Country: None (occurrence: None)
  Receive Date: 20050330
  Receipt Date: 20050321
  Transmission Date: 20050727
  Serious: Yes (Other)
  Sender: FDA-Public Use
  Company Number: GB-NOVOPROD-243042

PATIENT
  Age: 59 Year
  Sex: Female
  Weight: 83 kg

DRUGS (4)
  1. LEVEMIR FLEXPEN [Suspect]
     Indication: DIABETES MELLITUS
     Dosage: 40 IU, QD
     Route: 058
     Dates: start: 20050307, end: 20050309
  2. NOVORAPID [Suspect]
     Indication: DIABETES MELLITUS
     Dosage: 6 IU, BID
     Route: 058
     Dates: start: 20050307, end: 20050309
  3. VENLAFAXINE [Concomitant]
     Dosage: 75 MG, QD
     Route: 048
     Dates: start: 20030101
  4. THYROXIN [Concomitant]
     Dosage: 100 UG, QD
     Route: 048
     Dates: start: 20000101

REACTIONS (5)
  - DIZZINESS [None]
  - EYE PAIN [None]
  - HYPOAESTHESIA [None]
  - LOSS OF CONSCIOUSNESS [None]
  - VISION BLURRED [None]
